FAERS Safety Report 8485539-4 (Version None)
Quarter: 2012Q2

REPORT INFORMATION
  Report Type: 
  Country: None (occurrence: None)
  Receive Date: 20120627
  Receipt Date: 20120627
  Transmission Date: 20120825
  Serious: Yes (Hospitalization)
  Sender: FDA-Public Use
  Company Number: None

PATIENT
  Age: 25 Year
  Sex: Female
  Weight: 61.2356 kg

DRUGS (2)
  1. AXERT [Suspect]
     Indication: MIGRAINE
     Dosage: 4 PILLS IN ONE DAY 3 DAYS
     Dates: start: 20120427, end: 20120501
  2. MAXALT [Suspect]
     Indication: MIGRAINE
     Dosage: 4 PILLS IN 1 DAY 3 DAYS
     Dates: start: 20120428, end: 20120501

REACTIONS (6)
  - HYPOAESTHESIA [None]
  - TREMOR [None]
  - CYTOMEGALOVIRUS INFECTION [None]
  - APHASIA [None]
  - MIGRAINE [None]
  - CONDITION AGGRAVATED [None]
